FAERS Safety Report 22273824 (Version 1)
Quarter: 2023Q2

REPORT INFORMATION
  Report Type: Spontaneous
  Country: US (occurrence: None)
  Receive Date: 20230501
  Receipt Date: 20230501
  Transmission Date: 20230722
  Serious: No
  Sender: FDA-Public Use
  Company Number: None

PATIENT
  Sex: Female

DRUGS (1)
  1. ENTYVIO [Suspect]
     Active Substance: VEDOLIZUMAB
     Indication: Colitis ulcerative
     Dosage: OTHER FREQUENCY : Q 8WKS;?
     Route: 042
     Dates: start: 202108

REACTIONS (4)
  - Pain [None]
  - Rectal haemorrhage [None]
  - Proctitis [None]
  - Therapy non-responder [None]
